FAERS Safety Report 21987975 (Version 2)
Quarter: 2023Q1

REPORT INFORMATION
  Report Type: Report from Study
  Country: US (occurrence: US)
  Receive Date: 20230214
  Receipt Date: 20230328
  Transmission Date: 20230418
  Serious: Yes (Other)
  Sender: FDA-Public Use
  Company Number: US-ABBVIE-4305859

PATIENT
  Age: 68 Year
  Sex: Female

DRUGS (1)
  1. CREON [Suspect]
     Active Substance: PANCRELIPASE AMYLASE\PANCRELIPASE LIPASE\PANCRELIPASE PROTEASE
     Indication: Diarrhoea
     Dosage: TWO CAPSULES EVERY MEAL AND ONE CAPSULE PER SNACK?FORM STRENGTH-36000 UNIT?DRUG START DATE- 6 TO ...
     Route: 048

REACTIONS (4)
  - Large intestine polyp [Unknown]
  - Pancreatic failure [Unknown]
  - Diarrhoea [Unknown]
  - Surgery [Unknown]

NARRATIVE: CASE EVENT DATE: 20230206
